FAERS Safety Report 16142245 (Version 7)
Quarter: 2020Q2

REPORT INFORMATION
  Report Type: Spontaneous
  Country: US (occurrence: US)
  Receive Date: 20190401
  Receipt Date: 20200403
  Transmission Date: 20200713
  Serious: Yes (Other)
  Sender: FDA-Public Use
  Company Number: US-SA-2019SA087456

PATIENT
  Age: 62 Year
  Sex: Male

DRUGS (3)
  1. DUPIXENT [Suspect]
     Active Substance: DUPILUMAB
     Indication: DERMATITIS ATOPIC
     Dosage: 300 MG, QOW
     Route: 058
     Dates: start: 20180601
  2. ASPIRIN [ACETYLSALICYLIC ACID] [Concomitant]
     Active Substance: ASPIRIN
     Dosage: UNK, UNK
     Route: 065
  3. LISINOPRIL. [Concomitant]
     Active Substance: LISINOPRIL
     Dosage: UNK, UNK
     Route: 065

REACTIONS (16)
  - Nasopharyngitis [Unknown]
  - Malaise [Unknown]
  - Sleep disorder [Unknown]
  - Skin papilloma [Not Recovered/Not Resolved]
  - Erythema [Not Recovered/Not Resolved]
  - Condition aggravated [Not Recovered/Not Resolved]
  - Lower respiratory tract infection [Unknown]
  - Sinusitis [Unknown]
  - Lip swelling [Not Recovered/Not Resolved]
  - Product dose omission [Unknown]
  - Temperature intolerance [Not Recovered/Not Resolved]
  - Cough [Unknown]
  - Ocular hyperaemia [Not Recovered/Not Resolved]
  - Rib fracture [Unknown]
  - Dermatitis atopic [Unknown]
  - Pain in extremity [Not Recovered/Not Resolved]

NARRATIVE: CASE EVENT DATE: 2018
